FAERS Safety Report 13496747 (Version 1)
Quarter: 2017Q2

REPORT INFORMATION
  Report Type: Spontaneous
  Country: DK (occurrence: DK)
  Receive Date: 20170428
  Receipt Date: 20170428
  Transmission Date: 20170830
  Serious: Yes (Other)
  Sender: FDA-Public Use
  Company Number: DK-IPCA LABORATORIES LIMITED-IPC-2017-DK-000177

PATIENT
  Sex: Female

DRUGS (1)
  1. HYDROXYCHLOROQUINE [Suspect]
     Active Substance: HYDROXYCHLOROQUINE
     Indication: HABITUAL ABORTION
     Dosage: 200 MG, QD
     Route: 048

REACTIONS (3)
  - Tinnitus [Unknown]
  - Abortion [Unknown]
  - Exposure during pregnancy [None]
